FAERS Safety Report 25831958 (Version 1)
Quarter: 2025Q3

REPORT INFORMATION
  Report Type: Report from Study
  Country: US (occurrence: US)
  Receive Date: 20250922
  Receipt Date: 20250922
  Transmission Date: 20251021
  Serious: No
  Sender: SUNOVION
  Company Number: US-SUMITOMO PHARMA SWITZERLAND GMBH-2025SPA011771

PATIENT
  Age: 67 Year
  Sex: Male

DRUGS (10)
  1. ORGOVYX [Suspect]
     Active Substance: RELUGOLIX
     Indication: Prostate cancer
     Route: 048
  2. ORGOVYX [Suspect]
     Active Substance: RELUGOLIX
     Route: 048
  3. CALTRATE WITH VITAMIN D [Concomitant]
     Active Substance: CALCIUM CARBONATE\CHOLECALCIFEROL
  4. IBUPROFEN [Concomitant]
     Active Substance: IBUPROFEN
  5. LAMOTRIGINE [Concomitant]
     Active Substance: LAMOTRIGINE
  6. ROSUVASTATIN [Concomitant]
     Active Substance: ROSUVASTATIN
  7. TUMS [Concomitant]
     Active Substance: CALCIUM CARBONATE
  8. VITAMIN D [Concomitant]
     Active Substance: VITAMIN D NOS
  9. XTANDI [Concomitant]
     Active Substance: ENZALUTAMIDE
  10. ZINC [Concomitant]
     Active Substance: ZINC

REACTIONS (1)
  - Fatigue [Unknown]
